FAERS Safety Report 18938055 (Version 1)
Quarter: 2021Q1

REPORT INFORMATION
  Report Type: Spontaneous
  Country: CA (occurrence: CA)
  Receive Date: 20210224
  Receipt Date: 20210224
  Transmission Date: 20210420
  Serious: Yes (Hospitalization)
  Sender: FDA-Public Use
  Company Number: CA-TEVA-2021-CA-1882453

PATIENT
  Age: 12 Year
  Sex: Male

DRUGS (2)
  1. VINCRISTINE SULFATE INJECTION [Suspect]
     Active Substance: VINCRISTINE SULFATE
     Route: 042
  2. CERUBIDINE [Suspect]
     Active Substance: DAUNORUBICIN HYDROCHLORIDE
     Route: 065

REACTIONS (2)
  - Urinary retention [Recovering/Resolving]
  - Neuropathy peripheral [Recovering/Resolving]
